FAERS Safety Report 23601199 (Version 3)
Quarter: 2024Q1

REPORT INFORMATION
  Report Type: Spontaneous
  Country: US (occurrence: US)
  Receive Date: 20240306
  Receipt Date: 20240308
  Transmission Date: 20240410
  Serious: Yes (Other)
  Sender: FDA-Public Use
  Company Number: US-SA-2024SA073517

PATIENT
  Age: 67 Year
  Sex: Female

DRUGS (1)
  1. DUPIXENT [Suspect]
     Active Substance: DUPILUMAB
     Dosage: 300 MG
     Route: 058

REACTIONS (2)
  - Pneumonia [Unknown]
  - Injection site swelling [Unknown]

NARRATIVE: CASE EVENT DATE: 20230101
